FAERS Safety Report 5196045-7 (Version None)
Quarter: 2007Q1

REPORT INFORMATION
  Report Type: 
  Country: None (occurrence: None)
  Receive Date: 20070102
  Receipt Date: 20061219
  Transmission Date: 20070707
  Serious: Yes (Other)
  Sender: FDA-Public Use
  Company Number: JP-BRISTOL-MYERS SQUIBB COMPANY-13620554

PATIENT
  Age: 63 Year
  Sex: Female

DRUGS (1)
  1. MEVALOTIN [Suspect]
     Route: 048
     Dates: start: 20021101, end: 20030101

REACTIONS (1)
  - BLOOD CREATINE PHOSPHOKINASE INCREASED [None]
